FAERS Safety Report 14754749 (Version 3)
Quarter: 2025Q1

REPORT INFORMATION
  Report Type: Spontaneous
  Country: DE (occurrence: DE)
  Receive Date: 20180413
  Receipt Date: 20250327
  Transmission Date: 20250409
  Serious: No
  Sender: ALKEM
  Company Number: None

PATIENT
  Age: 48 Year
  Sex: Female

DRUGS (12)
  1. ARIPIPRAZOLE [Suspect]
     Active Substance: ARIPIPRAZOLE
     Indication: Product used for unknown indication
     Dosage: 10 MILLIGRAM, QD (TABLET)
     Route: 065
  2. QUETIAPINE FUMARATE [Suspect]
     Active Substance: QUETIAPINE FUMARATE
     Indication: Product used for unknown indication
     Dosage: 450 MILLIGRAM, QD (EVERY 1 DAY)
     Route: 048
     Dates: end: 20170117
  3. QUETIAPINE FUMARATE [Suspect]
     Active Substance: QUETIAPINE FUMARATE
     Dosage: 600 MILLIGRAM, QD (EVERY 1 DAY)
     Route: 048
     Dates: start: 20170118, end: 20170122
  4. QUETIAPINE FUMARATE [Suspect]
     Active Substance: QUETIAPINE FUMARATE
     Dosage: 750 MILLIGRAM, QD (EVERY 1 DAY)
     Route: 048
     Dates: start: 20170123, end: 20170125
  5. QUETIAPINE FUMARATE [Suspect]
     Active Substance: QUETIAPINE FUMARATE
     Dosage: 600 MILLIGRAM, QD (EVERY 1 DAY)
     Route: 048
     Dates: start: 20170126, end: 20170204
  6. QUETIAPINE FUMARATE [Suspect]
     Active Substance: QUETIAPINE FUMARATE
     Dosage: 450 MILLIGRAM, QD (EVERY 1 DAY)
     Route: 048
     Dates: start: 20170205, end: 20170212
  7. QUETIAPINE FUMARATE [Suspect]
     Active Substance: QUETIAPINE FUMARATE
     Route: 065
  8. VALPROATE [Suspect]
     Active Substance: VALPROIC ACID
     Indication: Product used for unknown indication
     Dosage: 1500 MILLIGRAM, QD (EVERY 1 DAY)
     Route: 048
     Dates: start: 20060101, end: 20170120
  9. VALPROATE [Suspect]
     Active Substance: VALPROIC ACID
     Dosage: 2000 MILLIGRAM, QD (EVERY 1 DAY)
     Route: 048
     Dates: start: 20170121, end: 20170203
  10. VALPROATE [Suspect]
     Active Substance: VALPROIC ACID
     Dosage: 1750 MILLIGRAM, QD (EVERY 1 DAY)
     Route: 048
     Dates: start: 20170203
  11. VALPROATE [Suspect]
     Active Substance: VALPROIC ACID
     Route: 065
  12. CARBAMAZEPINE [Concomitant]
     Active Substance: CARBAMAZEPINE
     Indication: Product used for unknown indication
     Route: 065

REACTIONS (3)
  - Sleep disorder [Unknown]
  - Initial insomnia [Unknown]
  - Underdose [Unknown]
